FAERS Safety Report 6208677-5 (Version None)
Quarter: 2009Q2

REPORT INFORMATION
  Report Type: 
  Country: None (occurrence: None)
  Receive Date: 20090529
  Receipt Date: 20090526
  Transmission Date: 20091009
  Serious: Yes (Death)
  Sender: FDA-Public Use
  Company Number: CH-ASTRAZENECA-2009PK01327

PATIENT
  Age: 65 Year
  Sex: Male

DRUGS (9)
  1. SEROQUEL [Suspect]
     Indication: BIPOLAR DISORDER
     Route: 048
     Dates: start: 20090301
  2. TRITTICO [Concomitant]
  3. LISITRIL [Concomitant]
  4. VITAMIN B1 TAB [Concomitant]
  5. BECOTAL FORTE [Concomitant]
  6. GLIMEPIRIDE [Concomitant]
     Indication: DIABETES MELLITUS
  7. ACTRAPID [Concomitant]
     Indication: DIABETES MELLITUS
  8. OEDEMEX [Concomitant]
     Indication: OEDEMA
  9. LASIX [Concomitant]
     Indication: OEDEMA

REACTIONS (1)
  - CARDIOMEGALY [None]
